FAERS Safety Report 7605643-X (Version None)
Quarter: 2011Q3

REPORT INFORMATION
  Report Type: 
  Country: None (occurrence: None)
  Receive Date: 20110713
  Receipt Date: 20110713
  Transmission Date: 20111222
  Serious: Yes (Hospitalization)
  Sender: FDA-Public Use
  Company Number: None

PATIENT
  Age: 17 Year

DRUGS (1)
  1. BLEOMYCIN SULFATE [Suspect]
     Indication: HODGKIN'S DISEASE
     Dosage: 10 UNITS/M2
     Route: 042
     Dates: start: 20110504, end: 20110504

REACTIONS (4)
  - PRODUCT SUBSTITUTION ISSUE [None]
  - HYPOTENSION [None]
  - PYREXIA [None]
  - HEART RATE INCREASED [None]
